FAERS Safety Report 8463487-3 (Version None)
Quarter: 2012Q2

REPORT INFORMATION
  Report Type: 
  Country: None (occurrence: None)
  Receive Date: 20120625
  Receipt Date: 20120614
  Transmission Date: 20120825
  Serious: Yes (Other)
  Sender: FDA-Public Use
  Company Number: US-ASTRAZENECA-2012SE39832

PATIENT
  Age: 73 Year
  Sex: Female
  Weight: 48.1 kg

DRUGS (8)
  1. XANAX [Concomitant]
     Indication: PANIC ATTACK
  2. LISINOPRIL [Suspect]
     Indication: BLOOD PRESSURE ABNORMAL
     Route: 048
  3. NEXIUM [Suspect]
     Indication: GASTROOESOPHAGEAL REFLUX DISEASE
     Route: 048
     Dates: start: 20070101
  4. ASPIRIN [Concomitant]
     Dosage: TWO TIMES A DAY
  5. AGGRENOX [Concomitant]
     Indication: BLOOD PRESSURE ABNORMAL
  6. NEXIUM [Suspect]
     Route: 048
     Dates: start: 20120101
  7. DIOVAN [Concomitant]
     Indication: BLOOD PRESSURE ABNORMAL
  8. CYCLOBENZAPRINE [Concomitant]
     Indication: MUSCLE RELAXANT THERAPY
     Dosage: HALF

REACTIONS (5)
  - MEMORY IMPAIRMENT [None]
  - PANIC ATTACK [None]
  - VISUAL IMPAIRMENT [None]
  - CEREBROVASCULAR ACCIDENT [None]
  - OFF LABEL USE [None]
